FAERS Safety Report 21228262 (Version 3)
Quarter: 2022Q4

REPORT INFORMATION
  Report Type: Spontaneous
  Country: LT (occurrence: LT)
  Receive Date: 20220818
  Receipt Date: 20221003
  Transmission Date: 20230113
  Serious: Yes (Death, Hospitalization, Other)
  Sender: FDA-Public Use
  Company Number: LT-ASTELLAS-2022US029470

PATIENT
  Age: 82 Year
  Sex: Male

DRUGS (1)
  1. XTANDI [Suspect]
     Active Substance: ENZALUTAMIDE
     Indication: Hormone-refractory prostate cancer
     Dosage: 160 MG, ONCE DAILY (6 COURSES OF TREATMENT))
     Route: 065
     Dates: start: 20210516, end: 20211020

REACTIONS (7)
  - Pulmonary embolism [Unknown]
  - Respiratory failure [Fatal]
  - Malignant neoplasm progression [Unknown]
  - Fall [Unknown]
  - Head injury [Unknown]
  - Prostatic specific antigen increased [Unknown]
  - Drug ineffective [Unknown]

NARRATIVE: CASE EVENT DATE: 20210923
